FAERS Safety Report 13013340 (Version 1)
Quarter: 2016Q4

REPORT INFORMATION
  Report Type: Spontaneous
  Country: CH (occurrence: AU)
  Receive Date: 20161209
  Receipt Date: 20161209
  Transmission Date: 20170207
  Serious: Yes (Hospitalization)
  Sender: FDA-Public Use
  Company Number: CH-LPDUSPRD-20161090

PATIENT
  Age: 23 Year
  Sex: Female

DRUGS (1)
  1. FERINJECT [Suspect]
     Active Substance: FERRIC CARBOXYMALTOSE
     Dosage: UNKNOWN
     Route: 041
     Dates: start: 20160525

REACTIONS (2)
  - Throat tightness [Recovered/Resolved]
  - Chest discomfort [Recovered/Resolved]

NARRATIVE: CASE EVENT DATE: 20160525
